FAERS Safety Report 12524762 (Version 2)
Quarter: 2016Q3

REPORT INFORMATION
  Report Type: Report from Study
  Country: US (occurrence: US)
  Receive Date: 20160704
  Receipt Date: 20160927
  Transmission Date: 20161109
  Serious: Yes (Hospitalization)
  Sender: FDA-Public Use
  Company Number: US-JNJFOC-20160627115

PATIENT
  Age: 71 Year
  Sex: Male

DRUGS (12)
  1. CLONIDINE. [Concomitant]
     Active Substance: CLONIDINE
  2. TERAZOSIN [Concomitant]
     Active Substance: TERAZOSIN\TERAZOSIN HYDROCHLORIDE
  3. LANTUS [Concomitant]
     Active Substance: INSULIN GLARGINE
  4. FOLIC ACID. [Concomitant]
     Active Substance: FOLIC ACID
  5. IMBRUVICA [Suspect]
     Active Substance: IBRUTINIB
     Indication: CHRONIC LYMPHOCYTIC LEUKAEMIA
     Route: 048
     Dates: start: 20141224, end: 2016
  6. ASPIRIN. [Concomitant]
     Active Substance: ASPIRIN
  7. NYSTATIN. [Concomitant]
     Active Substance: NYSTATIN
  8. HUMALOG [Concomitant]
     Active Substance: INSULIN LISPRO
  9. PROCRIT [Concomitant]
     Active Substance: ERYTHROPOIETIN
  10. IMBRUVICA [Suspect]
     Active Substance: IBRUTINIB
     Indication: CHRONIC LYMPHOCYTIC LEUKAEMIA
     Route: 048
     Dates: start: 2016
  11. ZOLPIDEM [Concomitant]
     Active Substance: ZOLPIDEM\ZOLPIDEM TARTRATE
  12. METOPROLOL TARTRATE. [Concomitant]
     Active Substance: METOPROLOL TARTRATE

REACTIONS (1)
  - Shigella infection [Recovered/Resolved]

NARRATIVE: CASE EVENT DATE: 201605
